FAERS Safety Report 6074082-8 (Version None)
Quarter: 2009Q1

REPORT INFORMATION
  Report Type: 
  Country: None (occurrence: None)
  Receive Date: 20090211
  Receipt Date: 20090206
  Transmission Date: 20090719
  Serious: Yes (Other)
  Sender: FDA-Public Use
  Company Number: A0767152A

PATIENT
  Age: 47 Year
  Sex: Female

DRUGS (5)
  1. LAMOTRIGINE [Suspect]
     Indication: BIPOLAR DISORDER
     Dosage: 100MG PER DAY
     Route: 048
     Dates: end: 20090205
  2. SEROQUEL [Suspect]
     Indication: BIPOLAR DISORDER
     Dosage: 900MG PER DAY
     Route: 048
  3. ABILIFY [Concomitant]
  4. CLONAZEPAM [Concomitant]
  5. CARBAMAZEPINE [Concomitant]

REACTIONS (2)
  - HYPOMANIA [None]
  - WEIGHT INCREASED [None]
